FAERS Safety Report 6776372-X (Version None)
Quarter: 2010Q2

REPORT INFORMATION
  Report Type: 
  Country: None (occurrence: None)
  Receive Date: 20100615
  Receipt Date: 20100607
  Transmission Date: 20101027
  Serious: Yes (Other)
  Sender: FDA-Public Use
  Company Number: 013221

PATIENT
  Sex: Female
  Weight: 77 kg

DRUGS (6)
  1. CIMZIA [Suspect]
     Indication: RHEUMATOID ARTHRITIS
     Dosage: (200 MG 1X/2 WEEKS SUBCUTANEOUS)
     Route: 058
     Dates: start: 20100223
  2. PLAQUENIL [Concomitant]
  3. INDOMETHACIN [Concomitant]
  4. PREDNISONE [Concomitant]
  5. COZAAR [Concomitant]
  6. HYDRAZIDE /00022001/ [Concomitant]

REACTIONS (3)
  - ANXIETY [None]
  - CELLULITIS [None]
  - HAEMORRHAGE [None]
